FAERS Safety Report 7062631-2 (Version None)
Quarter: 2010Q4

REPORT INFORMATION
  Report Type: 
  Country: None (occurrence: None)
  Receive Date: 20101026
  Receipt Date: 20091211
  Transmission Date: 20110411
  Serious: No
  Sender: FDA-Public Use
  Company Number: US-PFIZER INC-2009297988

PATIENT
  Age: 73 Year
  Sex: Male

DRUGS (3)
  1. LIPITOR [Suspect]
     Dosage: 80 MG, 1X/DAY
     Dates: start: 20051011, end: 20090705
  2. PLAVIX [Concomitant]
     Indication: CAROTID ARTERY STENT INSERTION
     Route: 048
     Dates: start: 20051010, end: 20091101
  3. ACETYLSALICYLIC ACID [Concomitant]
     Indication: CAROTID ARTERY STENT INSERTION
     Route: 048
     Dates: start: 19900101

REACTIONS (1)
  - MEMORY IMPAIRMENT [None]
